FAERS Safety Report 9267634 (Version 2)
Quarter: 2013Q2

REPORT INFORMATION
  Report Type: Spontaneous
  Country: IT (occurrence: IT)
  Receive Date: 20130502
  Receipt Date: 20130621
  Transmission Date: 20140414
  Serious: Yes (Hospitalization)
  Sender: FDA-Public Use
  Company Number: IT-ASTRAZENECA-2013SE28425

PATIENT
  Age: 780 Day
  Sex: Male

DRUGS (19)
  1. PULMAXAN [Suspect]
     Indication: BRONCHITIS
     Dosage: 0.25 MG/ML, 2 DF DAILY
     Route: 055
     Dates: start: 20130121, end: 20130122
  2. CLENIL [Suspect]
     Indication: BRONCHITIS
     Dosage: 0.8 MG/2 ML, 1 DF AS REQUIRED
     Route: 055
     Dates: start: 20130121, end: 20130122
  3. BENTELAN [Suspect]
     Indication: BRONCHITIS
     Route: 048
     Dates: start: 20130121, end: 20130122
  4. KEPPRA [Concomitant]
     Indication: GRAND MAL CONVULSION
     Dosage: 100 MG/ML
     Route: 048
  5. ESOMEPRAZOLE [Concomitant]
     Indication: GASTROOESOPHAGEAL REFLUX DISEASE
  6. RANITIDINE [Concomitant]
     Indication: GASTROOESOPHAGEAL REFLUX DISEASE
  7. PARACETAMOL [Concomitant]
     Indication: PYREXIA
     Dosage: AS NEEDED
  8. MIDAZOLAM [Concomitant]
     Indication: CONVULSION
  9. FLEBOCORTID [Concomitant]
     Indication: HYPERAEMIA
  10. CLARITHROMYCIN [Concomitant]
     Dates: start: 20130117
  11. BREVA [Concomitant]
  12. SALINE [Concomitant]
     Indication: NASAL CONGESTION
  13. DEPAKINE [Concomitant]
     Dates: start: 20130122
  14. BRONCOVALEAS [Concomitant]
     Dosage: 9 DROPS +3ML SALINE, AEROSOL 3 TIMES AT DAY
  15. CEFTRIAXONE [Concomitant]
     Dates: start: 20130119, end: 20130124
  16. VASELINE [Concomitant]
     Indication: CHAPPED LIPS
  17. DEXAMETHASONE [Concomitant]
     Route: 048
  18. OXYGEN [Concomitant]
     Dosage: AS NEEDED
  19. PROBIOTICS [Concomitant]

REACTIONS (4)
  - Ocular hyperaemia [Recovered/Resolved]
  - Urticaria [Recovered/Resolved]
  - Rash [Recovered/Resolved]
  - Drug hypersensitivity [Unknown]
